FAERS Safety Report 8486390-1 (Version None)
Quarter: 2012Q3

REPORT INFORMATION
  Report Type: 
  Country: None (occurrence: None)
  Receive Date: 20120703
  Receipt Date: 20120625
  Transmission Date: 20120928
  Serious: Yes (Hospitalization)
  Sender: FDA-Public Use
  Company Number: FI-GLAXOSMITHKLINE-B0811491A

PATIENT
  Sex: Male

DRUGS (3)
  1. ZINACEF [Suspect]
     Indication: URINARY TRACT INFECTION
     Route: 042
     Dates: start: 20120523, end: 20120528
  2. ATACAND [Concomitant]
     Indication: HYPERTENSION
     Route: 048
     Dates: start: 20070101, end: 20120101
  3. KETOPROFEN [Suspect]
     Indication: CALCULUS URINARY
     Route: 042
     Dates: start: 20120520, end: 20120520

REACTIONS (7)
  - C-REACTIVE PROTEIN INCREASED [None]
  - ASCITES [None]
  - PLEURAL EFFUSION [None]
  - PYREXIA [None]
  - ALANINE AMINOTRANSFERASE INCREASED [None]
  - ABDOMINAL PAIN UPPER [None]
  - HEPATIC NECROSIS [None]
